FAERS Safety Report 9868209 (Version 1)
Quarter: 2014Q1

REPORT INFORMATION
  Report Type: Spontaneous
  Country: US (occurrence: US)
  Receive Date: 20140204
  Receipt Date: 20140204
  Transmission Date: 20141002
  Serious: Yes (Death)
  Sender: FDA-Public Use
  Company Number: US-TEVA-459569USA

PATIENT
  Sex: Female

DRUGS (2)
  1. ACTIQ [Suspect]
     Indication: BREAKTHROUGH PAIN
     Dosage: 200
     Dates: start: 201401, end: 201401
  2. FENTANYL [Concomitant]
     Indication: PAIN

REACTIONS (1)
  - Death [Fatal]
